FAERS Safety Report 14764307 (Version 2)
Quarter: 2018Q2

REPORT INFORMATION
  Report Type: Report from Study
  Country: US (occurrence: US)
  Receive Date: 20180416
  Receipt Date: 20180621
  Transmission Date: 20180711
  Serious: Yes (Other)
  Sender: FDA-Public Use
  Company Number: PHEH2018US012999

PATIENT
  Sex: Female

DRUGS (1)
  1. COSENTYX [Suspect]
     Active Substance: SECUKINUMAB
     Indication: ANKYLOSING SPONDYLITIS
     Dosage: 150 MG, QW
     Route: 058

REACTIONS (5)
  - Intervertebral disc injury [Unknown]
  - Pain in extremity [Unknown]
  - Back pain [Not Recovered/Not Resolved]
  - Blood calcium increased [Unknown]
  - Device issue [Unknown]
